FAERS Safety Report 7068404-9 (Version None)
Quarter: 2010Q4

REPORT INFORMATION
  Report Type: 
  Country: None (occurrence: None)
  Receive Date: 20101028
  Receipt Date: 20101018
  Transmission Date: 20110411
  Serious: Yes (Hospitalization, Other)
  Sender: FDA-Public Use
  Company Number: B0675046A

PATIENT
  Age: 87 Year
  Sex: Female

DRUGS (3)
  1. VALACICLOVIR [Suspect]
     Indication: HERPES ZOSTER
     Dosage: 4TAB PER DAY
     Route: 048
     Dates: start: 20100101
  2. UNKNOWN DRUG [Suspect]
     Route: 042
     Dates: start: 20100101
  3. LOXONIN [Concomitant]
     Dosage: 2TAB PER DAY
     Route: 048
     Dates: start: 20100101

REACTIONS (6)
  - BLOOD CREATININE INCREASED [None]
  - BLOOD UREA INCREASED [None]
  - DYSARTHRIA [None]
  - NAUSEA [None]
  - OLIGURIA [None]
  - RENAL DISORDER [None]
